FAERS Safety Report 21905794 (Version 1)
Quarter: 2023Q1

REPORT INFORMATION
  Report Type: Spontaneous
  Country: JP (occurrence: JP)
  Receive Date: 20230124
  Receipt Date: 20230124
  Transmission Date: 20230418
  Serious: Yes (Other)
  Sender: FDA-Public Use
  Company Number: JP-SANTEN-AER-00872

PATIENT

DRUGS (1)
  1. OMIDENEPAG ISOPROPYL [Suspect]
     Active Substance: OMIDENEPAG ISOPROPYL
     Indication: Product used for unknown indication
     Dosage: UNKNOWN
     Route: 047

REACTIONS (3)
  - Cataract [Unknown]
  - Contraindicated product prescribed [Unknown]
  - Off label use [Unknown]
